FAERS Safety Report 16776053 (Version 1)
Quarter: 2019Q3

REPORT INFORMATION
  Report Type: Spontaneous
  Country: CN (occurrence: CN)
  Receive Date: 20190905
  Receipt Date: 20190905
  Transmission Date: 20191005
  Serious: Yes (Other)
  Sender: FDA-Public Use
  Company Number: CN-009507513-1909CHN000307

PATIENT
  Age: 85 Year
  Sex: Male

DRUGS (7)
  1. POTASSIUM CHLORIDE. [Concomitant]
     Active Substance: POTASSIUM CHLORIDE
     Indication: MINERAL SUPPLEMENTATION
     Dosage: 0.5 GRAM, TID
     Route: 048
     Dates: start: 20190530, end: 20190531
  2. INVANZ [Suspect]
     Active Substance: ERTAPENEM SODIUM
     Indication: LUNG INFECTION
     Dosage: 1 G + NS 100 ML, QD, IV GTT
     Route: 041
     Dates: start: 20190530, end: 20190610
  3. QI JIAO SHENG BAI JIAO NANG [Concomitant]
     Indication: WHITE BLOOD CELL COUNT DECREASED
     Dosage: 2 GRAM, TID
     Route: 048
     Dates: start: 20190530, end: 20190531
  4. GRANULOCYTE COLONY STIMULATING FACTOR (UNSPECIFIED) [Concomitant]
     Active Substance: FILGRASTIM
     Indication: WHITE BLOOD CELL COUNT DECREASED
     Dosage: 150 MICROGRAM, QD
     Route: 058
     Dates: start: 20190530, end: 20190531
  5. BATILOL. [Concomitant]
     Active Substance: BATILOL
     Indication: WHITE BLOOD CELL COUNT DECREASED
     Dosage: 50 MILLIGRAM, TID
     Route: 048
     Dates: start: 20190530, end: 20190531
  6. PREDNISONE ACETATE [Concomitant]
     Active Substance: PREDNISONE ACETATE
     Indication: INFLAMMATION
     Dosage: 10 MILLIGRAM, TID
     Route: 048
     Dates: start: 20190604, end: 20190611
  7. URSODIOL. [Concomitant]
     Active Substance: URSODIOL
     Indication: PROPHYLAXIS
     Dosage: 0.1 GRAM, TID
     Route: 048
     Dates: start: 20190601, end: 20190611

REACTIONS (5)
  - Cough [Recovered/Resolved]
  - Rash pruritic [Recovered/Resolved]
  - Starvation [Recovered/Resolved]
  - Decreased appetite [Recovered/Resolved]
  - Nausea [Recovered/Resolved]

NARRATIVE: CASE EVENT DATE: 20190601
